FAERS Safety Report 6717682-1 (Version None)
Quarter: 2010Q2

REPORT INFORMATION
  Report Type: 
  Country: None (occurrence: None)
  Receive Date: 20100507
  Receipt Date: 20100507
  Transmission Date: 20101027
  Serious: Yes (Other)
  Sender: FDA-Public Use
  Company Number: None

PATIENT
  Age: 40 Year
  Sex: Female
  Weight: 91.173 kg

DRUGS (2)
  1. BUPROPRION 100 MG [Suspect]
     Indication: SMOKING CESSATION THERAPY
     Dosage: 100MG QDAY PO
     Route: 048
     Dates: start: 20100310, end: 20100409
  2. BUPROPRION 150MG [Suspect]
     Dosage: 150MG BID PO
     Route: 048
     Dates: start: 20100410, end: 20100427

REACTIONS (1)
  - DEPRESSION SUICIDAL [None]
